FAERS Safety Report 15771149 (Version 3)
Quarter: 2019Q1

REPORT INFORMATION
  Report Type: Spontaneous
  Country: US (occurrence: US)
  Receive Date: 20181228
  Receipt Date: 20190325
  Transmission Date: 20190417
  Serious: Yes (Death, Other)
  Sender: FDA-Public Use
  Company Number: US-ITALFARMACO SPA-2060655

PATIENT
  Age: 72 Year
  Sex: Female

DRUGS (1)
  1. TIGLUTIK [Suspect]
     Active Substance: RILUZOLE
     Indication: AMYOTROPHIC LATERAL SCLEROSIS

REACTIONS (6)
  - Overdose [Fatal]
  - Urinary retention [Fatal]
  - Dyspnoea [Fatal]
  - Off label use [Fatal]
  - Medication error [Fatal]
  - Product use issue [Fatal]

NARRATIVE: CASE EVENT DATE: 201811
